FAERS Safety Report 8798194 (Version 1)
Quarter: 2012Q4

REPORT INFORMATION
  Report Type: 
  Country: US (occurrence: US)
  Receive Date: 20120920
  Receipt Date: 20120920
  Transmission Date: 20130627
  Serious: Yes (Death, Hospitalization, Other)
  Sender: FDA-Public Use
  Company Number: US-BRISTOL-MYERS SQUIBB COMPANY-16949935

PATIENT
  Age: 64 Year
  Sex: Female
  Weight: 54 kg

DRUGS (1)
  1. YERVOY [Suspect]
     Indication: MALIGNANT MELANOMA
     Dosage: 2nd infusion was on 03Apr2012 and her 3rd infusion was on 24Ap2012
No of inf 3
     Dates: start: 20120313

REACTIONS (12)
  - Death [Fatal]
  - Female genital tract fistula [Unknown]
  - Diarrhoea [Unknown]
  - Decreased appetite [Unknown]
  - Neuropathy peripheral [Unknown]
  - Nausea [Unknown]
  - Vomiting [Unknown]
  - Dysarthria [Unknown]
  - Dysphagia [Unknown]
  - Pain in extremity [Unknown]
  - Weight decreased [Unknown]
  - Fall [Unknown]
